FAERS Safety Report 12609739 (Version 1)
Quarter: 2016Q3

REPORT INFORMATION
  Report Type: Spontaneous
  Country: US (occurrence: US)
  Receive Date: 20160801
  Receipt Date: 20160801
  Transmission Date: 20161109
  Serious: No
  Sender: FDA-Public Use
  Company Number: US-TEVA-584586USA

PATIENT
  Sex: Female

DRUGS (1)
  1. RANITIDINE. [Suspect]
     Active Substance: RANITIDINE
     Route: 065
     Dates: start: 20150803

REACTIONS (4)
  - Nausea [Unknown]
  - Dysgeusia [Unknown]
  - Product odour abnormal [Unknown]
  - Product taste abnormal [Unknown]
